FAERS Safety Report 9729106 (Version 1)
Quarter: 2013Q4

REPORT INFORMATION
  Report Type: Spontaneous
  Country: GB (occurrence: GB)
  Receive Date: 20131204
  Receipt Date: 20131204
  Transmission Date: 20140711
  Serious: Yes (Other)
  Sender: FDA-Public Use
  Company Number: PHHY2013GB138004

PATIENT
  Sex: Male

DRUGS (2)
  1. RISPERIDONE [Suspect]
     Dosage: 0.5 MG
     Route: 065
  2. STRATTERA [Interacting]
     Dosage: 25 MG
     Route: 048

REACTIONS (10)
  - Repetitive speech [Recovered/Resolved]
  - Screaming [Recovered/Resolved]
  - Cyanosis [Recovered/Resolved]
  - Pallor [Recovered/Resolved]
  - Hypotonia [Recovered/Resolved]
  - Syncope [Recovered/Resolved]
  - Neuroleptic malignant syndrome [Recovered/Resolved]
  - Altered state of consciousness [Recovered/Resolved]
  - Loss of consciousness [Recovered/Resolved]
  - Drug interaction [Recovered/Resolved]
